FAERS Safety Report 24965792 (Version 2)
Quarter: 2025Q1

REPORT INFORMATION
  Report Type: Spontaneous
  Country: JP (occurrence: JP)
  Receive Date: 20250213
  Receipt Date: 20250225
  Transmission Date: 20250409
  Serious: Yes (Other)
  Sender: OTSUKA
  Company Number: JP-MMM-Otsuka-2DOJ7A9I

PATIENT
  Sex: Female

DRUGS (7)
  1. ABILIFY [Suspect]
     Active Substance: ARIPIPRAZOLE
     Indication: Schizophrenia
     Route: 048
     Dates: start: 202407, end: 20250204
  2. ABILIFY MAINTENA [Suspect]
     Active Substance: ARIPIPRAZOLE
     Indication: Schizophrenia
     Route: 065
     Dates: start: 20250204
  3. DAYVIGO [Suspect]
     Active Substance: LEMBOREXANT
     Indication: Product used for unknown indication
     Route: 048
  4. BELSOMRA [Suspect]
     Active Substance: SUVOREXANT
     Indication: Product used for unknown indication
     Route: 048
  5. ZOPICLONE [Suspect]
     Active Substance: ZOPICLONE
     Indication: Product used for unknown indication
     Route: 048
  6. SEROQUEL [Concomitant]
     Active Substance: QUETIAPINE FUMARATE
     Indication: Product used for unknown indication
     Route: 065
     Dates: start: 202410
  7. CLOZARIL [Concomitant]
     Active Substance: CLOZAPINE
     Indication: Product used for unknown indication
     Route: 065
     Dates: end: 202410

REACTIONS (7)
  - Hallucination [Unknown]
  - Dysphemia [Unknown]
  - Panic disorder [Unknown]
  - Hypoaesthesia [Unknown]
  - Fungal infection [Unknown]
  - Vomiting [Unknown]
  - Alopecia [Unknown]

NARRATIVE: CASE EVENT DATE: 20240701
